FAERS Safety Report 10077375 (Version 2)
Quarter: 2014Q2

REPORT INFORMATION
  Report Type: Spontaneous
  Country: US (occurrence: US)
  Receive Date: 20140414
  Receipt Date: 20140414
  Transmission Date: 20141212
  Serious: No
  Sender: FDA-Public Use
  Company Number: US-BANPHARM-20131432

PATIENT
  Age: 62 Year
  Sex: Female
  Weight: 107.05 kg

DRUGS (5)
  1. ALEVE LIQUID GELS 220 MG [Suspect]
     Dosage: 2 DF, QD,
     Route: 048
     Dates: start: 201304
  2. FOLIC ACID [Concomitant]
  3. PANTOPRAZOLE [Concomitant]
  4. LISINOPRIL [Concomitant]
  5. SYNTHROID [Concomitant]

REACTIONS (4)
  - Ageusia [Not Recovered/Not Resolved]
  - Dysgeusia [Not Recovered/Not Resolved]
  - Abdominal distension [Recovered/Resolved]
  - Incorrect drug administration duration [Unknown]
